FAERS Safety Report 17515653 (Version 1)
Quarter: 2020Q1

REPORT INFORMATION
  Report Type: Spontaneous
  Country: CN (occurrence: CN)
  Receive Date: 20200309
  Receipt Date: 20200309
  Transmission Date: 20200409
  Serious: Yes (Other)
  Sender: FDA-Public Use
  Company Number: NVSC2020CN064937

PATIENT
  Age: 65 Year
  Sex: Male

DRUGS (41)
  1. ENTRESTO [Suspect]
     Active Substance: SACUBITRIL\VALSARTAN
     Dosage: 75 MG, BID
     Route: 065
     Dates: start: 20180425
  2. ENTRESTO [Suspect]
     Active Substance: SACUBITRIL\VALSARTAN
     Dosage: 125 MG, QD (MORNING 75 MG AND EVENING 50 MG)
     Route: 065
     Dates: start: 20181128
  3. XIN KANG [Concomitant]
     Indication: PRODUCT USED FOR UNKNOWN INDICATION
     Dosage: 20 MG, QD
     Route: 065
     Dates: start: 20180627
  4. PLAVIX [Concomitant]
     Active Substance: CLOPIDOGREL BISULFATE
     Dosage: 75 MG, QD
     Route: 065
     Dates: start: 20181128
  5. VASOREL [Concomitant]
     Active Substance: TRIMETAZIDINE DIHYDROCHLORIDE
     Indication: PRODUCT USED FOR UNKNOWN INDICATION
     Dosage: 20 MG, TID
     Route: 065
     Dates: start: 20180627
  6. ENTRESTO [Suspect]
     Active Substance: SACUBITRIL\VALSARTAN
     Dosage: 83.3 MG, QD (MORNING 50 MG AND EVENING 33.3 MG)
     Route: 065
     Dates: start: 20181107
  7. JIN LUO [Concomitant]
     Indication: PRODUCT USED FOR UNKNOWN INDICATION
     Dosage: 7.5 MG, BID
     Route: 065
     Dates: start: 20180627
  8. JIN LUO [Concomitant]
     Dosage: 5 MG, BID
     Route: 065
     Dates: start: 20180711
  9. JIN LUO [Concomitant]
     Dosage: 7.5 MG, BID
     Route: 065
     Dates: start: 20181107
  10. JIN LUO [Concomitant]
     Dosage: 10 MG, BID
     Route: 065
     Dates: start: 20190508
  11. YI MAI GE [Concomitant]
     Indication: PRODUCT USED FOR UNKNOWN INDICATION
     Dosage: 5 MG, QD
     Route: 065
     Dates: start: 20180627
  12. PLAVIX [Concomitant]
     Active Substance: CLOPIDOGREL BISULFATE
     Dosage: 75 MG, QD
     Route: 065
     Dates: start: 20181107
  13. ENTRESTO [Suspect]
     Active Substance: SACUBITRIL\VALSARTAN
     Dosage: 37.5 MG, BID
     Route: 065
     Dates: start: 20180117
  14. ENTRESTO [Suspect]
     Active Substance: SACUBITRIL\VALSARTAN
     Dosage: 50 MG, BID
     Route: 065
     Dates: start: 20180509
  15. YI MAI GE [Concomitant]
     Dosage: 5 MG, QD
     Route: 065
     Dates: start: 20181107
  16. ENTRESTO [Suspect]
     Active Substance: SACUBITRIL\VALSARTAN
     Dosage: 33.3 MG, BID
     Route: 065
     Dates: start: 20180711
  17. JIN LUO [Concomitant]
     Dosage: 7.5 MG, BID
     Route: 065
     Dates: start: 20181128
  18. JIN LUO [Concomitant]
     Dosage: 7.5 MG, BID
     Route: 065
     Dates: start: 20190130
  19. YI MAI GE [Concomitant]
     Dosage: 5 MG, QD
     Route: 065
     Dates: start: 20190508
  20. VASOREL [Concomitant]
     Active Substance: TRIMETAZIDINE DIHYDROCHLORIDE
     Dosage: 20 MG, TID
     Route: 065
     Dates: start: 20190508
  21. ENTRESTO [Suspect]
     Active Substance: SACUBITRIL\VALSARTAN
     Dosage: 50 MG, BID
     Route: 065
     Dates: start: 20180627
  22. XIN KANG [Concomitant]
     Dosage: 20 MG, QD
     Route: 065
     Dates: start: 20190130, end: 20190508
  23. YI MAI GE [Concomitant]
     Dosage: 5 MG, BID
     Route: 065
     Dates: start: 20181128
  24. PLAVIX [Concomitant]
     Active Substance: CLOPIDOGREL BISULFATE
     Indication: PRODUCT USED FOR UNKNOWN INDICATION
     Dosage: 75 MG, QD
     Route: 065
     Dates: start: 20180627
  25. PLAVIX [Concomitant]
     Active Substance: CLOPIDOGREL BISULFATE
     Dosage: 75 MG, QD
     Route: 065
     Dates: start: 20190130
  26. ENTRESTO [Suspect]
     Active Substance: SACUBITRIL\VALSARTAN
     Indication: PRODUCT USED FOR UNKNOWN INDICATION
     Dosage: 62.5 MG, QD (MORNING 37.5 MG, EVENING 25 MG)
     Route: 065
     Dates: start: 20180103
  27. ENTRESTO [Suspect]
     Active Substance: SACUBITRIL\VALSARTAN
     Dosage: 87.5 MG, QD (MORNING 50 MG, EVENING 37.5 MG)
     Route: 065
     Dates: start: 20190131
  28. ENTRESTO [Suspect]
     Active Substance: SACUBITRIL\VALSARTAN
     Dosage: 50 MG, BID
     Route: 065
     Dates: start: 20190207
  29. XIN KANG [Concomitant]
     Dosage: 20 MG, QD
     Route: 065
     Dates: start: 20180711
  30. XIN KANG [Concomitant]
     Dosage: 20 MG, QD
     Route: 065
     Dates: start: 20181107
  31. YI MAI GE [Concomitant]
     Dosage: 5 MG, QD
     Route: 065
     Dates: start: 20190130
  32. VASOREL [Concomitant]
     Active Substance: TRIMETAZIDINE DIHYDROCHLORIDE
     Dosage: 20 MG, TID
     Route: 065
     Dates: start: 20181128
  33. ENTRESTO [Suspect]
     Active Substance: SACUBITRIL\VALSARTAN
     Dosage: 75 MG, BID
     Route: 065
     Dates: start: 20190130
  34. XIN KANG [Concomitant]
     Dosage: 20 MG, QD
     Route: 065
     Dates: start: 20181128
  35. PLAVIX [Concomitant]
     Active Substance: CLOPIDOGREL BISULFATE
     Dosage: 75 MG, QD
     Route: 065
     Dates: start: 20190508
  36. VASOREL [Concomitant]
     Active Substance: TRIMETAZIDINE DIHYDROCHLORIDE
     Dosage: 20 MG, TID
     Route: 065
     Dates: start: 20190130
  37. ENTRESTO [Suspect]
     Active Substance: SACUBITRIL\VALSARTAN
     Dosage: 75 MG, BID
     Route: 065
     Dates: start: 20190508
  38. YI MAI GE [Concomitant]
     Dosage: 5 MG, QD
     Route: 065
     Dates: start: 20180711
  39. PLAVIX [Concomitant]
     Active Substance: CLOPIDOGREL BISULFATE
     Dosage: 75 MG, QD
     Route: 065
     Dates: start: 20180711
  40. VASOREL [Concomitant]
     Active Substance: TRIMETAZIDINE DIHYDROCHLORIDE
     Dosage: 20 MG, TID
     Route: 065
     Dates: start: 20180711
  41. VASOREL [Concomitant]
     Active Substance: TRIMETAZIDINE DIHYDROCHLORIDE
     Dosage: 20 MG, TID
     Route: 065
     Dates: start: 20181107

REACTIONS (7)
  - Chest pain [Recovered/Resolved]
  - Blood pressure decreased [Unknown]
  - Amaurosis [Unknown]
  - Chest discomfort [Unknown]
  - Dizziness [Recovered/Resolved]
  - Wrong technique in product usage process [Unknown]
  - Fall [Unknown]

NARRATIVE: CASE EVENT DATE: 20180117
